FAERS Safety Report 18179774 (Version 1)
Quarter: 2020Q3

REPORT INFORMATION
  Report Type: Spontaneous
  Country: JP (occurrence: JP)
  Receive Date: 20200820
  Receipt Date: 20200820
  Transmission Date: 20201103
  Serious: Yes (Hospitalization, Other)
  Sender: FDA-Public Use
  Company Number: JP-SA-2020SA216255

PATIENT

DRUGS (16)
  1. INSULIN LISPRO [Concomitant]
     Active Substance: INSULIN LISPRO
     Dosage: 14 UNITS IN THE MORNING, 12 UNITS IN THE EVENING, 20XX+7 YEARS AND 3 MONTHS (AGE 86)
     Route: 065
  2. INSULIN LISPRO [Concomitant]
     Active Substance: INSULIN LISPRO
     Dosage: 10 UNITS IN THE MORNING (BEFORE BREAKFAST, DISCONTINUED WHEN NOT EATING), 20XX+9 YEARS AND 4 MONTHS
     Route: 065
  3. INSULIN LISPRO [Concomitant]
     Active Substance: INSULIN LISPRO
     Dosage: 14 UNITS IN THE MORNING, 12 UNITS IN THE EVENING, 20XX+7 YEARS AND 6 MONTHS (AGE 86)
     Route: 065
  4. INSULIN LISPRO [Concomitant]
     Active Substance: INSULIN LISPRO
     Dosage: 18 UNITS IN THE MORNING, 12 UNITS IN THE EVENING, 20XX+9 YEARS AND 1 MONTH (AGE 88)
     Route: 065
  5. INSULIN LISPRO [Concomitant]
     Active Substance: INSULIN LISPRO
     Dosage: 18 UNITS IN THE MORNING, 20XX+9 YEARS AND 4 MONTHS (AGE 88)
     Route: 065
  6. INSULIN LISPRO [Concomitant]
     Active Substance: INSULIN LISPRO
     Indication: TYPE 2 DIABETES MELLITUS
     Dosage: 14 UNITS IN THE MORNING, 12 UNITS IN THE EVENING, 20XX+7 YEARS AND 1 MONTH (AGE 86)
     Route: 065
  7. INSULIN LISPRO [Concomitant]
     Active Substance: INSULIN LISPRO
     Dosage: 18 UNITS IN THE MORNING, 12 UNITS IN THE EVENING, 20XX+7 YEARS AND 9 MONTHS (AGE 86)
     Route: 065
  8. INSULIN LISPRO [Concomitant]
     Active Substance: INSULIN LISPRO
     Dosage: 10 UNITS IN THE MORNING, 20XX+9 YEARS AND 6 MONTHS (AGE 88)
     Route: 065
  9. INSULIN LISPRO [Concomitant]
     Active Substance: INSULIN LISPRO
     Dosage: 18 UNITS IN THE MORNING, 12 UNITS IN THE EVENING, 20XX+8 YEARS AND 6 MONTHS (AGE 87)
     Route: 065
  10. LANTUS SOLOSTAR [Suspect]
     Active Substance: INSULIN GLARGINE
     Indication: TYPE 2 DIABETES MELLITUS
     Dosage: 8 UNITS, 20XX+9 YEARS AND 4 MONTHS (AGE 88)
     Route: 058
  11. INSULIN LISPRO [Concomitant]
     Active Substance: INSULIN LISPRO
     Dosage: 18 UNITS IN THE MORNING, 12 UNITS IN THE EVENING, 20XX+8 YEARS AND 2 MONTHS (AGE 87)
     Route: 065
  12. INSULIN LISPRO [Concomitant]
     Active Substance: INSULIN LISPRO
     Dosage: 18 UNITS IN THE MORNING, 12 UNITS IN THE EVENING, 20XX+8 YEARS AND 9 MONTHS (AGE 87)
     Route: 065
  13. INSULIN LISPRO [Concomitant]
     Active Substance: INSULIN LISPRO
     Dosage: 18 UNITS IN THE MORNING, 12 UNITS IN THE EVENING, 20XX+8 YEARS AND 12 MONTHS (AGE 87)
     Route: 065
  14. LANTUS SOLOSTAR [Suspect]
     Active Substance: INSULIN GLARGINE
     Dosage: 14 UNITS IN THE MORNING, 20XX+9 YEARS AND 4 MONTHS (AGE 88)
     Route: 058
  15. LANTUS SOLOSTAR [Suspect]
     Active Substance: INSULIN GLARGINE
     Dosage: 14 UNITS IN THE MORNING, 20XX+9 YEARS AND 6 MONTHS (AGE 88)
     Route: 058
  16. INSULIN LISPRO [Concomitant]
     Active Substance: INSULIN LISPRO
     Dosage: 18 UNITS IN THE MORNING, 12 UNITS IN THE EVENING, 20XX+8 YEARS AND 10 MONTHS (AGE 87)
     Route: 065

REACTIONS (3)
  - Peripheral artery occlusion [Unknown]
  - Cold sweat [Unknown]
  - Hypoglycaemia [Recovered/Resolved]
